FAERS Safety Report 5025663-1 (Version None)
Quarter: 2006Q2

REPORT INFORMATION
  Report Type: 
  Country: None (occurrence: None)
  Receive Date: 20060614
  Receipt Date: 20060612
  Transmission Date: 20061013
  Serious: Yes (Death)
  Sender: FDA-Public Use
  Company Number: FR-JNJFOC-20060602488

PATIENT
  Age: 40 Year
  Sex: Female

DRUGS (1)
  1. CAELYX [Suspect]
     Indication: OVARIAN CANCER
     Route: 042

REACTIONS (1)
  - DEATH [None]
